FAERS Safety Report 7974101-5 (Version None)
Quarter: 2011Q4

REPORT INFORMATION
  Report Type: 
  Country: None (occurrence: None)
  Receive Date: 20111213
  Receipt Date: 20111206
  Transmission Date: 20120403
  Serious: Yes (Hospitalization)
  Sender: FDA-Public Use
  Company Number: PHHY2011IN106168

PATIENT
  Age: 20 Year
  Sex: Female

DRUGS (2)
  1. ISONIAZID [Suspect]
     Indication: TUBERCULOSIS
     Dosage: UNK UKN, UNK
  2. ISONIAZID [Suspect]
     Indication: RESPIRATORY DISORDER

REACTIONS (10)
  - ABDOMINAL DISTENSION [None]
  - JOINT SWELLING [None]
  - ABDOMINAL RIGIDITY [None]
  - ABDOMINAL PAIN UPPER [None]
  - MALAISE [None]
  - PANCREATITIS ACUTE [None]
  - PYREXIA [None]
  - GASTROINTESTINAL SOUNDS ABNORMAL [None]
  - VOMITING [None]
  - ABDOMINAL TENDERNESS [None]
